FAERS Safety Report 12755756 (Version 1)
Quarter: 2016Q3

REPORT INFORMATION
  Report Type: Spontaneous
  Country: US (occurrence: US)
  Receive Date: 20160916
  Receipt Date: 20160916
  Transmission Date: 20161109
  Serious: No
  Sender: FDA-Public Use
  Company Number: US-PFIZER INC-2016433196

PATIENT
  Age: 75 Year
  Sex: Male

DRUGS (2)
  1. ERYTHROMYCIN. [Suspect]
     Active Substance: ERYTHROMYCIN
     Indication: ASTHMA
     Dosage: EVERY 4 HOURS
  2. VITAMIN C [Interacting]
     Active Substance: ASCORBIC ACID
     Dosage: 1 G, 1X/DAY (IN THE MORNING)

REACTIONS (2)
  - Drug ineffective [Unknown]
  - Drug interaction [Unknown]
